FAERS Safety Report 5758359-9 (Version None)
Quarter: 2008Q2

REPORT INFORMATION
  Report Type: 
  Country: None (occurrence: None)
  Receive Date: 20080604
  Receipt Date: 20080526
  Transmission Date: 20081010
  Serious: Yes (Other)
  Sender: FDA-Public Use
  Company Number: FR-JNJFOC-20080505455

PATIENT
  Age: 53 Year
  Sex: Male
  Weight: 60 kg

DRUGS (12)
  1. REMICADE [Suspect]
     Route: 042
  2. REMICADE [Suspect]
     Route: 042
  3. REMICADE [Suspect]
     Route: 042
  4. REMICADE [Suspect]
     Route: 042
  5. REMICADE [Suspect]
     Route: 042
  6. REMICADE [Suspect]
     Indication: UVEITIS
     Route: 042
  7. DI-ANTALVIC [Concomitant]
  8. METHOTREXATE [Concomitant]
  9. COLCHICINE [Concomitant]
  10. FOLIC ACID [Concomitant]
  11. CORTANCYL [Concomitant]
  12. NEXIUM [Concomitant]

REACTIONS (1)
  - DIARRHOEA [None]
